FAERS Safety Report 9230234 (Version 2)
Quarter: 2013Q3

REPORT INFORMATION
  Report Type: Report from Study
  Country: BR (occurrence: BR)
  Receive Date: 20130415
  Receipt Date: 20130812
  Transmission Date: 20140515
  Serious: Yes (Other)
  Sender: FDA-Public Use
  Company Number: PHHY2013BR034528

PATIENT
  Sex: Male
  Weight: 77 kg

DRUGS (1)
  1. DIOVAN HCT [Suspect]
     Indication: BLOOD PRESSURE MANAGEMENT
     Dosage: 1 DF (160 MG VALS AND 12.5 MG HYDRO), DAILY
     Route: 048
     Dates: start: 201203

REACTIONS (4)
  - Dengue fever [Recovered/Resolved]
  - Eye pain [Not Recovered/Not Resolved]
  - Blood pressure increased [Unknown]
  - Cough [Recovered/Resolved]
